FAERS Safety Report 10080787 (Version 1)
Quarter: 2014Q2

REPORT INFORMATION
  Report Type: Spontaneous
  Country: US (occurrence: None)
  Receive Date: 20140414
  Receipt Date: 20140414
  Transmission Date: 20141212
  Serious: Yes (Other)
  Sender: FDA-Public Use
  Company Number: 2014US00022

PATIENT
  Sex: 0

DRUGS (4)
  1. SORAFENIB [Suspect]
     Indication: PRODUCT USED FOR UNKNOWN INDICATION
  2. EPIRUBICIN [Suspect]
     Dosage: 30 MG/2DX3 D EVERY 21 DAYS
  3. IFOSFAMIDE [Suspect]
     Dosage: 2.500 MG/2/D X 3 D EVERY 21 DAYS
  4. RADIATION [Suspect]
     Indication: SARCOMA
     Dosage: 350 CGY X 8 FRACTIONS

REACTIONS (1)
  - Syncope [None]
